FAERS Safety Report 5695124-5 (Version None)
Quarter: 2008Q2

REPORT INFORMATION
  Report Type: 
  Country: None (occurrence: None)
  Receive Date: 20080404
  Receipt Date: 20080327
  Transmission Date: 20081010
  Serious: Yes (Hospitalization, Other)
  Sender: FDA-Public Use
  Company Number: RO-ABBOTT-07P-135-0422564-00

PATIENT
  Age: 1 Day
  Sex: Male
  Weight: 3.3 kg

DRUGS (1)
  1. KALETRA [Suspect]
     Indication: DRUG EXPOSURE DURING PREGNANCY
     Route: 064

REACTIONS (8)
  - CYTOMEGALOVIRUS TEST [None]
  - DRUG EXPOSURE DURING PREGNANCY [None]
  - HAEMOLYTIC ANAEMIA [None]
  - HIV INFECTION CDC CATEGORY B1 [None]
  - JAUNDICE NEONATAL [None]
  - ORAL CANDIDIASIS [None]
  - PREMATURE BABY [None]
  - THROMBOCYTOPENIA [None]
